FAERS Safety Report 5871962-0 (Version None)
Quarter: 2008Q3

REPORT INFORMATION
  Report Type: 
  Country: None (occurrence: None)
  Receive Date: 20080905
  Receipt Date: 20080904
  Transmission Date: 20090109
  Serious: Yes (Death)
  Sender: FDA-Public Use
  Company Number: GB-BRISTOL-MYERS SQUIBB COMPANY-14324057

PATIENT
  Age: 61 Year
  Sex: Female

DRUGS (3)
  1. KENALOG [Suspect]
  2. MARCAINE [Concomitant]
  3. OMNIPAQUE 140 [Concomitant]

REACTIONS (1)
  - ORGAN FAILURE [None]
